FAERS Safety Report 19162661 (Version 1)
Quarter: 2021Q2

REPORT INFORMATION
  Report Type: Spontaneous
  Country: US (occurrence: US)
  Receive Date: 20210420
  Receipt Date: 20210420
  Transmission Date: 20210717
  Serious: No
  Sender: FDA-Public Use
  Company Number: US-DRREDDYS-USA/USA/21/0134377

PATIENT
  Age: 81 Year
  Sex: Male
  Weight: 110.25 kg

DRUGS (1)
  1. NICOTINE. [Suspect]
     Active Substance: NICOTINE
     Indication: TOBACCO USER
     Dosage: ONE PATCH A DAY
     Route: 062
     Dates: start: 20210101

REACTIONS (5)
  - Product administration interrupted [Unknown]
  - Product dose omission issue [Unknown]
  - Product use issue [Unknown]
  - Underdose [Unknown]
  - Product adhesion issue [Unknown]
